FAERS Safety Report 24409109 (Version 3)
Quarter: 2024Q4

REPORT INFORMATION
  Report Type: Spontaneous
  Country: JP (occurrence: JP)
  Receive Date: 20241008
  Receipt Date: 20241129
  Transmission Date: 20250115
  Serious: Yes (Death, Hospitalization, Other)
  Sender: JOHNSON AND JOHNSON
  Company Number: JP-JNJFOC-20241007167

PATIENT
  Age: 81 Year
  Sex: Male
  Weight: 52.6 kg

DRUGS (2)
  1. ERLEADA [Suspect]
     Active Substance: APALUTAMIDE
     Indication: Prostate cancer metastatic
     Route: 048
     Dates: start: 20240612, end: 20240902
  2. OXYGEN [Concomitant]
     Active Substance: OXYGEN
     Indication: Product used for unknown indication
     Route: 055

REACTIONS (5)
  - Interstitial lung disease [Fatal]
  - Rash [Not Recovered/Not Resolved]
  - Acute myocardial infarction [Unknown]
  - Back pain [Unknown]
  - Bacterial infection [Unknown]

NARRATIVE: CASE EVENT DATE: 20240801
